FAERS Safety Report 9275649 (Version 1)
Quarter: 2013Q2

REPORT INFORMATION
  Report Type: Spontaneous
  Country: US (occurrence: None)
  Receive Date: 20130502
  Receipt Date: 20130502
  Transmission Date: 20140414
  Serious: Yes (Other)
  Sender: FDA-Public Use
  Company Number: None

PATIENT
  Age: 49 Year
  Sex: Female

DRUGS (2)
  1. CIPROFLOXACIN HCL [Suspect]
     Indication: OVERGROWTH BACTERIAL
     Route: 048
     Dates: start: 20130320, end: 20130425
  2. CIPROFLOXACIN HCL [Suspect]
     Indication: CROHN^S DISEASE
     Route: 048
     Dates: start: 20130320, end: 20130425

REACTIONS (2)
  - Arthralgia [None]
  - Activities of daily living impaired [None]
